FAERS Safety Report 18322774 (Version 5)
Quarter: 2022Q1

REPORT INFORMATION
  Report Type: Report from Study
  Country: BR (occurrence: BR)
  Receive Date: 20200928
  Receipt Date: 20220106
  Transmission Date: 20220423
  Serious: Yes (Other)
  Sender: FDA-Public Use
  Company Number: BR-UCBSA-2020038058

PATIENT
  Age: 46 Year
  Sex: Female
  Weight: 65 kg

DRUGS (20)
  1. CERTOLIZUMAB PEGOL [Suspect]
     Active Substance: CERTOLIZUMAB PEGOL
     Indication: Rheumatoid arthritis
     Dosage: 400 MILLIGRAM, EV 2 WEEKS(QOW)
     Route: 058
     Dates: start: 201801, end: 202011
  2. CERTOLIZUMAB PEGOL [Suspect]
     Active Substance: CERTOLIZUMAB PEGOL
     Dosage: 400 MILLIGRAM, EV 30 DAYS
     Route: 058
     Dates: start: 2018, end: 20210517
  3. PREDNISONE [Concomitant]
     Active Substance: PREDNISONE
     Indication: Pain
     Dosage: 20 MILLIGRAM, UNK
     Route: 048
     Dates: start: 202007
  4. LORATADINE [Concomitant]
     Active Substance: LORATADINE
     Indication: Hypersensitivity
     Dosage: 10 MILLIGRAM, UNK
     Route: 048
     Dates: start: 20200811
  5. HYDROXYZINE HYDROCHLORIDE [Concomitant]
     Active Substance: HYDROXYZINE HYDROCHLORIDE
     Dosage: UNK
     Route: 048
     Dates: start: 202007
  6. METFORMIN [Concomitant]
     Active Substance: METFORMIN HYDROCHLORIDE
     Indication: Diabetes mellitus
     Dosage: UNK
     Route: 048
     Dates: start: 2010
  7. GLICLAZIDE [Concomitant]
     Active Substance: GLICLAZIDE
     Indication: Diabetes mellitus
     Dosage: UNK
     Route: 048
     Dates: start: 2010
  8. HERBALS\SUNFLOWER OIL [Concomitant]
     Active Substance: HERBALS\SUNFLOWER OIL
  9. COCONUT OIL [Concomitant]
     Active Substance: COCONUT OIL
  10. DIPYRONE [Concomitant]
     Active Substance: DIPYRONE
     Indication: Pain
  11. PURAN [Concomitant]
     Active Substance: LEVOTHYROXINE SODIUM
     Indication: Hypothyroidism
     Dosage: 100 MILLIGRAM
     Route: 048
     Dates: start: 2008
  12. GLIFAGE [Concomitant]
     Active Substance: METFORMIN HYDROCHLORIDE
     Indication: Diabetes mellitus
     Dosage: 4 TABLETS DAILY
     Route: 048
     Dates: start: 2010
  13. CIPROFLOXACIN HYDROCHLORIDE [Concomitant]
     Active Substance: CIPROFLOXACIN HYDROCHLORIDE
     Indication: Urinary tract pain
     Dosage: 2 TABLETS
     Route: 048
     Dates: start: 20210507, end: 20210513
  14. CIPROFLOXACIN HYDROCHLORIDE [Concomitant]
     Active Substance: CIPROFLOXACIN HYDROCHLORIDE
     Indication: Bladder pain
  15. BILASTINE [Concomitant]
     Active Substance: BILASTINE
     Indication: Dermatitis
     Dosage: 1 TABLET DAILY
     Route: 048
     Dates: start: 202011
  16. LOSARTAN [Concomitant]
     Active Substance: LOSARTAN
     Indication: Blood pressure abnormal
     Dosage: 1 TABLET PER NIGHT
     Route: 048
  17. DAPAGLIFLOZIN [Concomitant]
     Active Substance: DAPAGLIFLOZIN
     Indication: Diabetes mellitus
     Dosage: 1 DOSAGE FORM, ONCE DAILY (QD)
     Route: 048
  18. FENOFIBRATE [Concomitant]
     Active Substance: FENOFIBRATE
     Indication: Blood cholesterol increased
     Dosage: 1 DOSAGE FORM, ONCE DAILY (QD)
     Route: 048
  19. QUETIAPINE [Concomitant]
     Active Substance: QUETIAPINE
     Indication: Insomnia
     Dosage: 1 DOSAGE FORM
     Route: 048
  20. COVID-19 VACCINE [Concomitant]
     Indication: Product used for unknown indication
     Dosage: UNK

REACTIONS (30)
  - Pneumonia [Recovered/Resolved]
  - Epistaxis [Recovered/Resolved]
  - Diabetes mellitus [Not Recovered/Not Resolved]
  - COVID-19 [Recovered/Resolved]
  - Hypersensitivity [Recovering/Resolving]
  - Dry skin [Recovering/Resolving]
  - Pain [Recovering/Resolving]
  - Pyrexia [Recovered/Resolved]
  - Urinary tract infection [Recovered/Resolved]
  - Weight increased [Unknown]
  - Trismus [Unknown]
  - Joint lock [Unknown]
  - Joint swelling [Unknown]
  - Sinusitis [Not Recovered/Not Resolved]
  - Erythema [Unknown]
  - Urinary tract pain [Not Recovered/Not Resolved]
  - Bladder pain [Not Recovered/Not Resolved]
  - Dermatitis [Not Recovered/Not Resolved]
  - Ear disorder [Not Recovered/Not Resolved]
  - Eye discharge [Not Recovered/Not Resolved]
  - Jaundice [Recovered/Resolved]
  - COVID-19 immunisation [Unknown]
  - Therapy interrupted [Unknown]
  - Product availability issue [Unknown]
  - Memory impairment [Not Recovered/Not Resolved]
  - Insomnia [Not Recovered/Not Resolved]
  - Feeling hot [Not Recovered/Not Resolved]
  - Blood pressure abnormal [Not Recovered/Not Resolved]
  - Blood cholesterol increased [Not Recovered/Not Resolved]
  - Tinnitus [Not Recovered/Not Resolved]

NARRATIVE: CASE EVENT DATE: 20180101
